FAERS Safety Report 23977221 (Version 1)
Quarter: 2024Q2

REPORT INFORMATION
  Report Type: Spontaneous
  Country: US (occurrence: US)
  Receive Date: 20240614
  Receipt Date: 20240614
  Transmission Date: 20240716
  Serious: Yes (Other)
  Sender: FDA-Public Use
  Company Number: HIKM2404348

PATIENT
  Sex: Male

DRUGS (1)
  1. IPRATROPIUM BROMIDE [Suspect]
     Active Substance: IPRATROPIUM BROMIDE\IPRATROPIUM BROMIDE ANHYDROUS
     Indication: Rhinorrhoea
     Dosage: TWO SPRAYS IN EACH NOSTRIL, TWICE A DAY
     Route: 048

REACTIONS (6)
  - Chromaturia [Unknown]
  - Condition aggravated [Unknown]
  - Renal disorder [Unknown]
  - Bladder disorder [Unknown]
  - Constipation [Unknown]
  - Off label use [Unknown]
